FAERS Safety Report 6655833-8 (Version None)
Quarter: 2010Q1

REPORT INFORMATION
  Report Type: 
  Country: None (occurrence: None)
  Receive Date: 20100317
  Receipt Date: 20100107
  Transmission Date: 20100710
  Serious: No
  Sender: FDA-Public Use
  Company Number: DSA_42303_2010

PATIENT
  Sex: Female

DRUGS (20)
  1. XENAZINE [Suspect]
     Indication: HUNTINGTON'S CHOREA
     Dosage: 25 MG QID
  2. CLONOPIN [Concomitant]
  3. SINGULAIR [Concomitant]
  4. FLEXERIL [Concomitant]
  5. AMBIEN [Concomitant]
  6. SOMA [Concomitant]
  7. VICODIN [Concomitant]
  8. DICLOFENAC [Concomitant]
  9. FIORICET [Concomitant]
  10. CARDIZEM [Concomitant]
  11. ZOLOFT [Concomitant]
  12. GLUCOPHAGE [Concomitant]
  13. NEXIUM [Concomitant]
  14. CRESTOR [Concomitant]
  15. THYROID TAB [Concomitant]
  16. ISOSORBIDE DINITRATE [Concomitant]
  17. LIDODERM [Concomitant]
  18. ZETIA [Concomitant]
  19. OMACOR [Concomitant]
  20. SACCHARIN SODIUM [Concomitant]

REACTIONS (1)
  - DEPRESSION [None]
